FAERS Safety Report 7678719-9 (Version None)
Quarter: 2011Q3

REPORT INFORMATION
  Report Type: 
  Country: None (occurrence: None)
  Receive Date: 20110811
  Receipt Date: 20110805
  Transmission Date: 20111222
  Serious: Yes (Hospitalization)
  Sender: FDA-Public Use
  Company Number: US-B.I. PHARMACEUTICALS,INC./RIDGEFIELD-2011-BP-19308BP

PATIENT
  Age: 62 Year
  Sex: Male

DRUGS (23)
  1. BUPROPRIONE [Concomitant]
     Indication: DEPRESSION
     Dosage: 300 MG
     Route: 048
  2. DURAGESIC-100 [Concomitant]
     Indication: PAIN
     Dosage: 100 MG
     Route: 048
  3. CALCIUM CARBONATE [Concomitant]
     Indication: OSTEOPOROSIS
     Dosage: 600 MG
     Route: 048
  4. MICARDIS HCT [Suspect]
     Indication: HYPERTENSION
     Route: 048
  5. ROPINIROLE [Concomitant]
     Indication: RESTLESS LEGS SYNDROME
     Dosage: 1 MG
     Route: 048
  6. ROPINIROLE [Concomitant]
     Dosage: 100 MG
     Route: 048
  7. FOLBIC [Concomitant]
     Indication: VITAMIN B12 DEFICIENCY
     Route: 048
  8. DURAGESIC-100 [Concomitant]
     Indication: RADICULOPATHY
  9. TRAZODONE HCL [Concomitant]
     Indication: DEPRESSION
     Dosage: 150 MG
     Route: 048
  10. METAMUCIL-2 [Concomitant]
     Dosage: 100 MG
     Route: 048
  11. SIMVASTATIN [Concomitant]
     Indication: BLOOD CHOLESTEROL INCREASED
     Route: 048
  12. TRAZODONE HCL [Concomitant]
     Dosage: 100 MG
     Route: 048
  13. BUPROPRIONE [Concomitant]
     Dosage: 100 MG
     Route: 048
  14. FOLBIC [Concomitant]
     Dosage: 100 MG
     Route: 048
  15. METAMUCIL-2 [Concomitant]
     Indication: CONSTIPATION
     Route: 048
  16. CITALOPRAM HYDROBROMIDE [Concomitant]
     Indication: DEPRESSION
     Dosage: 2 MG
     Route: 048
  17. PRILOSEC [Concomitant]
     Indication: GASTROOESOPHAGEAL REFLUX DISEASE
     Dosage: 20 MG
     Route: 048
  18. OXYCODONE HCL [Concomitant]
     Indication: PAIN
     Dosage: 10 MG
     Route: 048
  19. OXYCODONE HCL [Concomitant]
     Dosage: 100 MG
     Route: 048
  20. FOSAMAX [Concomitant]
     Indication: OSTEOPOROSIS
     Route: 048
  21. FOSAMAX [Concomitant]
     Dosage: 100 MG
     Route: 048
  22. SIMVASTATIN [Concomitant]
     Dosage: 100 MG
     Route: 048
  23. CALCIUM CARBONATE [Concomitant]
     Dosage: 100 MG
     Route: 048

REACTIONS (6)
  - OROPHARYNGEAL PAIN [None]
  - GASTRITIS [None]
  - VOMITING [None]
  - PNEUMONIA [None]
  - NAUSEA [None]
  - PYREXIA [None]
